FAERS Safety Report 5143895-9 (Version None)
Quarter: 2006Q4

REPORT INFORMATION
  Report Type: 
  Country: None (occurrence: None)
  Receive Date: 20061102
  Receipt Date: 20061102
  Transmission Date: 20070319
  Serious: Yes (Disabling, Other)
  Sender: FDA-Public Use
  Company Number: None

PATIENT
  Age: 44 Year
  Sex: Female
  Weight: 49.4421 kg

DRUGS (7)
  1. DEPO-MEDROL [Suspect]
     Indication: INTERVERTEBRAL DISC PROTRUSION
     Dosage: 80MG ONCE DAILY EPIDURAL
     Route: 008
     Dates: start: 20040713
  2. LIDOCAINE [Suspect]
     Indication: INTERVERTEBRAL DISC PROTRUSION
     Dosage: 80MG ONCE DAILY EPIDURAL
     Route: 008
     Dates: start: 20040713
  3. LYRICA [Concomitant]
  4. BACLOFEN [Concomitant]
  5. TRAMADOL HCL [Concomitant]
  6. RELAFEN [Concomitant]
  7. NEXIUM [Concomitant]

REACTIONS (11)
  - BLADDER DISORDER [None]
  - BURNING SENSATION [None]
  - DYSKINESIA [None]
  - GASTROINTESTINAL DISORDER [None]
  - HYPERMOBILITY SYNDROME [None]
  - HYPOAESTHESIA [None]
  - MIGRAINE [None]
  - NECK PAIN [None]
  - PARAESTHESIA [None]
  - SENSORY DISTURBANCE [None]
  - URINARY RETENTION [None]
